FAERS Safety Report 9125476 (Version 1)
Quarter: 2013Q1

REPORT INFORMATION
  Report Type: Spontaneous
  Country: US (occurrence: US)
  Receive Date: 20130117
  Receipt Date: 20130117
  Transmission Date: 20140127
  Serious: No
  Sender: FDA-Public Use
  Company Number: US-BRISTOL-MYERS SQUIBB COMPANY-17197369

PATIENT
  Age: 58 Year
  Sex: Female
  Weight: 63.04 kg

DRUGS (1)
  1. YERVOY [Suspect]
     Indication: MALIGNANT MELANOMA
     Dosage: NO OF INF:2

REACTIONS (1)
  - Bronchitis [Unknown]
